FAERS Safety Report 5098549-4 (Version None)
Quarter: 2006Q3

REPORT INFORMATION
  Report Type: 
  Country: None (occurrence: None)
  Receive Date: 20060906
  Receipt Date: 20060228
  Transmission Date: 20061208
  Serious: No
  Sender: FDA-Public Use
  Company Number: US-GLAXOSMITHKLINE-A0595552A

PATIENT
  Age: 83 Year
  Sex: Male

DRUGS (12)
  1. REQUIP [Suspect]
     Indication: RESTLESS LEGS SYNDROME
     Dosage: 1MG AT NIGHT
     Route: 048
     Dates: start: 20060201
  2. FUROSEMIDE [Concomitant]
  3. ENALAPRIL [Concomitant]
  4. SPIRONOLACTONE [Concomitant]
  5. METOPROLOL TARTRATE [Concomitant]
  6. PLAVIX [Concomitant]
  7. SIMVASTATIN [Concomitant]
  8. LEVOTHYROXINE SODIUM [Concomitant]
  9. OMEPRAZOLE [Concomitant]
  10. SIMETHICONE [Concomitant]
  11. APAP TAB [Concomitant]
  12. AMBIEN [Concomitant]

REACTIONS (1)
  - SEDATION [None]
